FAERS Safety Report 12215880 (Version 1)
Quarter: 2016Q1

REPORT INFORMATION
  Report Type: Spontaneous
  Country: PT (occurrence: PT)
  Receive Date: 20160328
  Receipt Date: 20160328
  Transmission Date: 20160526
  Serious: Yes (Other)
  Sender: FDA-Public Use
  Company Number: PHHY2016PT037456

PATIENT
  Age: 43 Year
  Sex: Female

DRUGS (2)
  1. ZONISAMIDE. [Suspect]
     Active Substance: ZONISAMIDE
     Indication: GENERALISED TONIC-CLONIC SEIZURE
     Dosage: 25 MG, UNK
     Route: 065
  2. ZONISAMIDE. [Suspect]
     Active Substance: ZONISAMIDE
     Dosage: 100 MG, UNK
     Route: 065

REACTIONS (1)
  - Hepatic failure [Recovering/Resolving]
